FAERS Safety Report 11499899 (Version 1)
Quarter: 2015Q3

REPORT INFORMATION
  Report Type: Spontaneous
  Country: BR (occurrence: BR)
  Receive Date: 20150914
  Receipt Date: 20150914
  Transmission Date: 20151125
  Serious: Yes (Other)
  Sender: FDA-Public Use
  Company Number: BR-TORRENT-00003076

PATIENT
  Age: 34 Year
  Sex: Female
  Weight: 89 kg

DRUGS (4)
  1. CLONAZEPAM. [Concomitant]
     Active Substance: CLONAZEPAM
     Indication: INSOMNIA
     Dosage: ONCE DAILY/ ORAL
     Route: 048
     Dates: start: 2012
  2. SERENATA [Suspect]
     Active Substance: SERTRALINE HYDROCHLORIDE
     Indication: BIPOLAR DISORDER
     Dosage: ONCE DAILY/ ORAL
     Route: 048
     Dates: start: 201502
  3. NEULEPTIL [Concomitant]
     Active Substance: PERICIAZINE
     Indication: BIPOLAR DISORDER
     Dosage: 10 DROPS DAILY/ ORAL
     Route: 048
     Dates: start: 201502
  4. EUTHYROX [Concomitant]
     Active Substance: LEVOTHYROXINE SODIUM
     Indication: HYPOTHYROIDISM
     Dosage: ONCE DAILY/ ORAL
     Route: 048
     Dates: start: 2011

REACTIONS (4)
  - Laziness [Not Recovered/Not Resolved]
  - Diarrhoea haemorrhagic [Recovered/Resolved]
  - Lethargy [Recovered/Resolved]
  - Off label use [Not Recovered/Not Resolved]

NARRATIVE: CASE EVENT DATE: 201502
